FAERS Safety Report 6874410-7 (Version None)
Quarter: 2010Q3

REPORT INFORMATION
  Report Type: 
  Country: None (occurrence: None)
  Receive Date: 20100723
  Receipt Date: 20100723
  Transmission Date: 20110219
  Serious: Yes (Other)
  Sender: FDA-Public Use
  Company Number: None

PATIENT
  Sex: Female
  Weight: 114.76 kg

DRUGS (1)
  1. RITUXAN [Suspect]
     Indication: RHEUMATOID ARTHRITIS
     Dosage: 1000MG TWICE Q 6 MOS. IV RXN APPEARED 1H35MG AFTER INFUSION BEGAN
     Route: 042
     Dates: start: 20100720

REACTIONS (5)
  - COUGH [None]
  - DYSPNOEA [None]
  - FLUSHING [None]
  - INFUSION RELATED REACTION [None]
  - OROPHARYNGEAL PAIN [None]
